FAERS Safety Report 17302903 (Version 1)
Quarter: 2020Q1

REPORT INFORMATION
  Report Type: Spontaneous
  Country: US (occurrence: US)
  Receive Date: 20200122
  Receipt Date: 20200122
  Transmission Date: 20200409
  Serious: No
  Sender: FDA-Public Use
  Company Number: US-ENDO PHARMACEUTICALS INC-2019-104714

PATIENT
  Sex: Female
  Weight: 102.9 kg

DRUGS (1)
  1. PERCOCET [Suspect]
     Active Substance: ACETAMINOPHEN\OXYCODONE HYDROCHLORIDE
     Indication: BACK PAIN
     Dosage: 1 DF, TID
     Route: 048

REACTIONS (5)
  - Influenza like illness [Unknown]
  - Nausea [Unknown]
  - Feeling cold [Unknown]
  - Hyperhidrosis [Unknown]
  - Feeling hot [Unknown]
